FAERS Safety Report 19913857 (Version 1)
Quarter: 2021Q4

REPORT INFORMATION
  Report Type: Spontaneous
  Country: CN (occurrence: CN)
  Receive Date: 20211004
  Receipt Date: 20211004
  Transmission Date: 20220303
  Serious: Yes (Hospitalization, Other)
  Sender: FDA-Public Use
  Company Number: CN-BAXTER-2021BAX026433

PATIENT
  Age: 50 Year
  Sex: Female
  Weight: 59 kg

DRUGS (19)
  1. CYCLOPHOSPHAMIDE [Suspect]
     Active Substance: CYCLOPHOSPHAMIDE
     Indication: Non-Hodgkin^s lymphoma
     Dosage: 1 TO 4TH R-CHOP REGIMEN; CYCLOPHOSPHAMIDE + 0.9% SODIUM CHLORIDE
     Route: 041
  2. CYCLOPHOSPHAMIDE [Suspect]
     Active Substance: CYCLOPHOSPHAMIDE
     Dosage: CYCLOPHOSPHAMIDE 1.15G + 0.9% SODIUM CHLORIDE 100ML, FIFTH R-CHOP REGIMEN
     Route: 041
     Dates: start: 20191010, end: 20191010
  3. SODIUM CHLORIDE [Suspect]
     Active Substance: SODIUM CHLORIDE
     Indication: Medication dilution
     Dosage: RITUXIMAB + 0.9% SODIUM CHLORIDE; 1 TO 4TH R-CHOP REGIMEN
     Route: 041
  4. SODIUM CHLORIDE [Suspect]
     Active Substance: SODIUM CHLORIDE
     Dosage: CYCLOPHOSPHAMIDE + 0.9% SODIUM CHLORIDE; 1 TO 4TH R-CHOP REGIMEN
     Route: 041
  5. SODIUM CHLORIDE [Suspect]
     Active Substance: SODIUM CHLORIDE
     Dosage: VINDESINE + 0.9% SODIUM CHLORIDE; 1 TO 4TH R-CHOP REGIMEN
     Route: 041
  6. SODIUM CHLORIDE [Suspect]
     Active Substance: SODIUM CHLORIDE
     Dosage: RITUXIMAB 100MG + 0.9% SODIUM CHLORIDE 100 ML; FIFTH R-CHOP REGIMEN
     Route: 041
     Dates: start: 20191009, end: 20191009
  7. SODIUM CHLORIDE [Suspect]
     Active Substance: SODIUM CHLORIDE
     Dosage: RITUXIMAB 500MG + 0.9% SODIUM CHLORIDE 100 ML; FIFTH R-CHOP REGIMEN
     Route: 041
     Dates: start: 20191009, end: 20191009
  8. SODIUM CHLORIDE [Suspect]
     Active Substance: SODIUM CHLORIDE
     Dosage: CYCLOPHOSPHAMIDE 1.15G + 0.9% SODIUM CHLORIDE 100ML; FIFTH R-CHOP REGIMEN
     Route: 041
     Dates: start: 20191010, end: 20191010
  9. SODIUM CHLORIDE [Suspect]
     Active Substance: SODIUM CHLORIDE
     Dosage: VINDESINE 4.5MG + 0.9% SODIUM CHLORIDE 100ML; FIFTH R-CHOP REGIMEN
     Route: 041
     Dates: start: 20191010, end: 20191010
  10. DEXTROSE [Suspect]
     Active Substance: DEXTROSE
     Indication: Medication dilution
     Dosage: EPIRUBICIN HYDROCHLORIDE + 5% GLUCOSE; 1 TO 4TH R-CHOP REGIMEN
     Route: 041
  11. DEXTROSE [Suspect]
     Active Substance: DEXTROSE
     Dosage: EPIRUBICIN HYDROCHLORIDE 140MG + 5% GLUCOSE 250ML; FIFTH R-CHOP REGIMEN
     Route: 041
     Dates: start: 20191010, end: 20191010
  12. EPIRUBICIN HYDROCHLORIDE [Suspect]
     Active Substance: EPIRUBICIN HYDROCHLORIDE
     Indication: Non-Hodgkin^s lymphoma
     Dosage: EPIRUBICIN HYDROCHLORIDE + 5% GLUCOSE; 1 TO 4 R-CHOP REGIMEN
     Route: 041
  13. EPIRUBICIN HYDROCHLORIDE [Suspect]
     Active Substance: EPIRUBICIN HYDROCHLORIDE
     Dosage: EPIRUBICIN HYDROCHLORIDE 140MG + 5% GLUCOSE 250ML; FIFTH R-CHOP REGIMEN
     Route: 041
     Dates: start: 20191010, end: 20191010
  14. VINDESINE SULFATE [Suspect]
     Active Substance: VINDESINE SULFATE
     Indication: Non-Hodgkin^s lymphoma
     Dosage: VINDESINE + 0.9% SODIUM CHLORIDE; 1 TO 4 R-CHOP REGIMEN
     Route: 041
  15. VINDESINE SULFATE [Suspect]
     Active Substance: VINDESINE SULFATE
     Dosage: VINDESINE 4.5MG + 0.9% SODIUM CHLORIDE 100ML; FIFTH R-CHOP REGIMEN
     Route: 041
     Dates: start: 20191010, end: 20191010
  16. MABTHERA [Suspect]
     Active Substance: RITUXIMAB
     Indication: Non-Hodgkin^s lymphoma
     Dosage: RITUXIMAB 100MG + 0.9% SODIUM CHLORIDE; 1 TO 4 R-CHOP REGIMEN
     Route: 041
  17. MABTHERA [Suspect]
     Active Substance: RITUXIMAB
     Dosage: RITUXIMAB 500MG + 0.9% SODIUM CHLORIDE 100 ML; FIFTH R-CHOP REGIMEN
     Route: 041
     Dates: start: 20191009, end: 20191009
  18. MABTHERA [Suspect]
     Active Substance: RITUXIMAB
     Dosage: RITUXIMAB 100MG + 0.9% SODIUM CHLORIDE 100 ML; FIFTH R-CHOP REGIMEN
     Route: 041
     Dates: start: 20191009, end: 20191009
  19. PREDNISONE ACETATE [Suspect]
     Active Substance: PREDNISONE ACETATE
     Indication: Non-Hodgkin^s lymphoma
     Route: 048
     Dates: start: 20191010, end: 20191015

REACTIONS (2)
  - Myelosuppression [Recovering/Resolving]
  - Myelosuppression [Recovered/Resolved]

NARRATIVE: CASE EVENT DATE: 20191018
